FAERS Safety Report 5097622-4 (Version None)
Quarter: 2006Q3

REPORT INFORMATION
  Report Type: 
  Country: None (occurrence: None)
  Receive Date: 20060901
  Receipt Date: 20060803
  Transmission Date: 20061208
  Serious: Yes (Hospitalization, Disabling)
  Sender: FDA-Public Use
  Company Number: ENT 2006-0105

PATIENT
  Age: 84 Year
  Sex: Male

DRUGS (12)
  1. COMTESS (ENTACAPONE) [Suspect]
     Indication: PARKINSON'S DISEASE
     Dosage: 200 MG; 400 MG (200 MG, 2 IN 1 D) ; 600 MG (200 MG, 3 IN 1 D)
     Route: 048
     Dates: start: 20060718, end: 20060718
  2. COMTESS (ENTACAPONE) [Suspect]
     Indication: PARKINSON'S DISEASE
     Dosage: 200 MG; 400 MG (200 MG, 2 IN 1 D) ; 600 MG (200 MG, 3 IN 1 D)
     Route: 048
     Dates: start: 20060719, end: 20060719
  3. COMTESS (ENTACAPONE) [Suspect]
     Indication: PARKINSON'S DISEASE
     Dosage: 200 MG; 400 MG (200 MG, 2 IN 1 D) ; 600 MG (200 MG, 3 IN 1 D)
     Route: 048
     Dates: start: 20060720, end: 20060720
  4. MADOPAR [Concomitant]
  5. QUININE SULFATE [Concomitant]
  6. RAMIPRIL [Concomitant]
  7. FALODIPINE MR [Concomitant]
  8. AMIODARONE HYDROCHLORIDE [Concomitant]
  9. FUROSEMIDE [Concomitant]
  10. TADALAFIL [Concomitant]
  11. ALSASOLYN NR [Concomitant]
  12. DIGOXIN [Concomitant]

REACTIONS (4)
  - CONTUSION [None]
  - DRUG INTERACTION [None]
  - INTERNATIONAL NORMALISED RATIO INCREASED [None]
  - RECTAL HAEMORRHAGE [None]
